FAERS Safety Report 7331374-X (Version None)
Quarter: 2011Q1

REPORT INFORMATION
  Report Type: 
  Country: None (occurrence: None)
  Receive Date: 20110228
  Receipt Date: 20110228
  Transmission Date: 20110831
  Serious: Yes (Hospitalization)
  Sender: FDA-Public Use
  Company Number: None

PATIENT
  Age: 41 Year
  Sex: Male
  Weight: 60 kg

DRUGS (4)
  1. CIPROFLOXACIN [Suspect]
     Indication: SALMONELLA BACTERAEMIA
     Dosage: 750 MG EVERY DAY PO ; 600 MG EVERY DAY PO
     Route: 048
     Dates: start: 20101123, end: 20101222
  2. CIPROFLOXACIN [Suspect]
     Indication: OPPORTUNISTIC INFECTION PROPHYLAXIS
     Dosage: 750 MG EVERY DAY PO ; 600 MG EVERY DAY PO
     Route: 048
     Dates: start: 20101123, end: 20101222
  3. CIPROFLOXACIN [Suspect]
     Indication: SALMONELLA BACTERAEMIA
     Dosage: 750 MG EVERY DAY PO ; 600 MG EVERY DAY PO
     Route: 048
     Dates: start: 20100331
  4. CIPROFLOXACIN [Suspect]
     Indication: OPPORTUNISTIC INFECTION PROPHYLAXIS
     Dosage: 750 MG EVERY DAY PO ; 600 MG EVERY DAY PO
     Route: 048
     Dates: start: 20100331

REACTIONS (6)
  - HYPOPHAGIA [None]
  - DIARRHOEA [None]
  - FATIGUE [None]
  - TREATMENT NONCOMPLIANCE [None]
  - PRODUCTIVE COUGH [None]
  - CLOSTRIDIAL INFECTION [None]
